FAERS Safety Report 8240359-0 (Version None)
Quarter: 2012Q1

REPORT INFORMATION
  Report Type: 
  Country: None (occurrence: None)
  Receive Date: 20120312
  Receipt Date: 20111014
  Transmission Date: 20120608
  Serious: Yes (Hospitalization)
  Sender: FDA-Public Use
  Company Number: 2011SP048857

PATIENT
  Sex: Female

DRUGS (6)
  1. SAPHRIS [Suspect]
  2. SAPHRIS [Suspect]
  3. SAPHRIS [Suspect]
     Indication: PRODUCT USED FOR UNKNOWN INDICATION
  4. SAPHRIS [Suspect]
  5. SAPHRIS [Suspect]
  6. SAPHRIS [Suspect]

REACTIONS (3)
  - DRUG DOSE OMISSION [None]
  - INJURY [None]
  - INAPPROPRIATE SCHEDULE OF DRUG ADMINISTRATION [None]
